FAERS Safety Report 8296028-4 (Version None)
Quarter: 2012Q2

REPORT INFORMATION
  Report Type: 
  Country: None (occurrence: None)
  Receive Date: 20120418
  Receipt Date: 20120412
  Transmission Date: 20120825
  Serious: Yes (Other)
  Sender: FDA-Public Use
  Company Number: US-GLAXOSMITHKLINE-A0794451A

PATIENT
  Sex: Male

DRUGS (2)
  1. AVANDIA [Suspect]
     Indication: TYPE 2 DIABETES MELLITUS
     Dosage: 8U PER DAY
     Route: 048
     Dates: start: 20010101, end: 20061231
  2. AVANDAMET [Suspect]
     Indication: DIABETES MELLITUS
     Route: 048

REACTIONS (6)
  - CHEST PAIN [None]
  - STRESS [None]
  - ARRHYTHMIA [None]
  - ANGINA PECTORIS [None]
  - MYOCARDIAL INFARCTION [None]
  - HEART RATE IRREGULAR [None]
